FAERS Safety Report 18701209 (Version 1)
Quarter: 2021Q1

REPORT INFORMATION
  Report Type: Spontaneous
  Country: US (occurrence: US)
  Receive Date: 20210105
  Receipt Date: 20210105
  Transmission Date: 20210419
  Serious: Yes (Hospitalization)
  Sender: FDA-Public Use
  Company Number: None

PATIENT
  Age: 70 Year
  Sex: Male
  Weight: 104 kg

DRUGS (25)
  1. OMEPRAZOLE. [Concomitant]
     Active Substance: OMEPRAZOLE
  2. FUROSEMIDE. [Concomitant]
     Active Substance: FUROSEMIDE
  3. BENZOATE [Concomitant]
     Active Substance: BENZOIC ACID
  4. FAMOTIDINE. [Concomitant]
     Active Substance: FAMOTIDINE
  5. MELATONIN [Concomitant]
     Active Substance: MELATONIN
  6. METOPROLOL. [Concomitant]
     Active Substance: METOPROLOL
  7. ALPRAZOLAM. [Concomitant]
     Active Substance: ALPRAZOLAM
  8. CEFAZOLIN [Concomitant]
     Active Substance: CEFAZOLIN
  9. ZINC. [Concomitant]
     Active Substance: ZINC
  10. ALBUTEROL. [Concomitant]
     Active Substance: ALBUTEROL
  11. BAMLANIVIMAB. [Suspect]
     Active Substance: BAMLANIVIMAB
     Indication: COVID-19
     Route: 042
     Dates: start: 20201228, end: 20201228
  12. OMEGA 3 FATTY ACIDS [Concomitant]
     Active Substance: OMEGA-3 FATTY ACIDS
  13. ASCORBIC ACID. [Concomitant]
     Active Substance: ASCORBIC ACID
  14. REMDESIVIR. [Concomitant]
     Active Substance: REMDESIVIR
  15. ROSUVASTATIN CALCIUM. [Concomitant]
     Active Substance: ROSUVASTATIN CALCIUM
  16. FLUTICASONE PROPIONATE. [Concomitant]
     Active Substance: FLUTICASONE PROPIONATE
  17. CEFUROXIME. [Concomitant]
     Active Substance: CEFUROXIME
  18. COVID CONVALESCENT PLASMA [Concomitant]
  19. SACUBITRIL?VALSARTIN [Concomitant]
  20. ALLOPURINOL. [Concomitant]
     Active Substance: ALLOPURINOL
  21. CHOLECALCIFEROL [Concomitant]
     Active Substance: CHOLECALCIFEROL
  22. MULTI VITAMIN [Concomitant]
     Active Substance: VITAMINS
  23. AZELESTINEHCL 0.1% [Concomitant]
  24. DEXAMETHASONE. [Concomitant]
     Active Substance: DEXAMETHASONE
  25. FEXOFENADINE [Concomitant]
     Active Substance: FEXOFENADINE HYDROCHLORIDE

REACTIONS (3)
  - Dyspnoea [None]
  - Tachycardia [None]
  - Oxygen saturation decreased [None]
